FAERS Safety Report 18556699 (Version 3)
Quarter: 2021Q1

REPORT INFORMATION
  Report Type: Spontaneous
  Country: CZ (occurrence: CZ)
  Receive Date: 20201128
  Receipt Date: 20210108
  Transmission Date: 20210419
  Serious: Yes (Hospitalization, Other)
  Sender: FDA-Public Use
  Company Number: CZ-TAKEDA-2020TUS052158

PATIENT
  Sex: Male

DRUGS (10)
  1. KIOVIG [Suspect]
     Active Substance: HUMAN IMMUNOGLOBULIN G
     Indication: MYASTHENIA GRAVIS
     Dosage: 10 GRAM, MONTHLY
     Route: 042
     Dates: start: 2017
  2. RITUXIMAB. [Concomitant]
     Active Substance: RITUXIMAB
     Dosage: UNK
     Dates: start: 201711
  3. DISTIGMINE [Concomitant]
     Indication: MYASTHENIA GRAVIS
     Dosage: 5 MILLIGRAM
     Route: 048
     Dates: start: 2016
  4. KIOVIG [Suspect]
     Active Substance: HUMAN IMMUNOGLOBULIN G
     Dosage: 10 GRAM, MONTHLY
     Route: 042
     Dates: start: 201712
  5. KIOVIG [Suspect]
     Active Substance: HUMAN IMMUNOGLOBULIN G
     Dosage: 20 GRAM
     Route: 042
     Dates: start: 201711
  6. FLEBOGAMMA DIF [Suspect]
     Active Substance: HUMAN IMMUNOGLOBULIN G
     Indication: MYASTHENIA GRAVIS
     Dosage: 30 GRAM
     Route: 042
     Dates: start: 201703, end: 20170926
  7. AMBENONIUM [Concomitant]
     Active Substance: AMBENONIUM
     Indication: MYASTHENIA GRAVIS
     Dosage: 30 MILLIGRAM
     Route: 048
     Dates: start: 2016
  8. TACROLIMUS. [Concomitant]
     Active Substance: TACROLIMUS
     Indication: MYASTHENIA GRAVIS
     Dosage: 2 MILLIGRAM
     Route: 048
  9. ACIDUM ACETHYLSALICYLICUM [Concomitant]
     Indication: CARDIAC DISORDER
     Dosage: 100 MILLIGRAM
     Route: 048
  10. PREDNISONUM [Concomitant]
     Active Substance: PREDNISONE
     Indication: MYASTHENIA GRAVIS
     Dosage: 5 MILLIGRAM
     Route: 048
     Dates: start: 2016

REACTIONS (3)
  - Pancreatitis acute [Recovered/Resolved]
  - Abdominal pain upper [Recovered/Resolved]
  - Cholelithiasis [Recovered/Resolved]

NARRATIVE: CASE EVENT DATE: 20170926
